FAERS Safety Report 15395863 (Version 1)
Quarter: 2018Q3

REPORT INFORMATION
  Report Type: Spontaneous
  Country: US (occurrence: US)
  Receive Date: 20180912
  Receipt Date: 20180912
  Transmission Date: 20181010
  Serious: Yes (Other)
  Sender: FDA-Public Use
  Company Number: None

PATIENT
  Age: 75 Year
  Sex: Female
  Weight: 53.07 kg

DRUGS (10)
  1. L?GLUTAMINE [Concomitant]
  2. LYRICA [Suspect]
     Active Substance: PREGABALIN
     Indication: FIBROMYALGIA
     Dosage: 1 CAPSULE 3 TIMES A DAY REDUCED TO 0 BY MOUTH?
     Route: 048
     Dates: start: 20161116, end: 20180725
  3. VITAMIN D3 [Concomitant]
     Active Substance: CHOLECALCIFEROL
  4. PROBIOTIC [Concomitant]
     Active Substance: PROBIOTICS NOS
  5. CURCUMIN [Concomitant]
     Active Substance: CURCUMIN
  6. COQ10 [Concomitant]
     Active Substance: UBIDECARENONE
  7. OMEGA 3 [Concomitant]
     Active Substance: OMEGA-3 FATTY ACIDS
  8. CLONAZEPAM. [Concomitant]
     Active Substance: CLONAZEPAM
  9. MAGNESIUM [Concomitant]
     Active Substance: MAGNESIUM
  10. METHYL GUARD [Concomitant]

REACTIONS (6)
  - Pain [None]
  - Constipation [None]
  - Functional gastrointestinal disorder [None]
  - Bladder dysfunction [None]
  - Withdrawal syndrome [None]
  - Urinary retention [None]

NARRATIVE: CASE EVENT DATE: 20180827
